FAERS Safety Report 4280483-0 (Version None)
Quarter: 2004Q1

REPORT INFORMATION
  Report Type: 
  Country: None (occurrence: None)
  Receive Date: 20040127
  Receipt Date: 20040119
  Transmission Date: 20041129
  Serious: Yes (Life-Threatening, Other)
  Sender: FDA-Public Use
  Company Number: 2004000544

PATIENT
  Age: 70 Year
  Sex: Male

DRUGS (3)
  1. UNASYN [Suspect]
     Indication: PNEUMONIA
     Dosage: 6 GRAM, DAILY, INTRAVENOUS
     Route: 042
     Dates: start: 20031221, end: 20031221
  2. ACETYLSALICYLIC ACID SRT [Concomitant]
  3. LOXOPROFEN SODIUM [Concomitant]

REACTIONS (3)
  - DRUG HYPERSENSITIVITY [None]
  - DYSPNOEA [None]
  - PLEURAL EFFUSION [None]
